FAERS Safety Report 9454759 (Version 2)
Quarter: 2013Q3

REPORT INFORMATION
  Report Type: Report from Study
  Country: CA (occurrence: CA)
  Receive Date: 20130812
  Receipt Date: 20130821
  Transmission Date: 20140515
  Serious: Yes (Hospitalization)
  Sender: FDA-Public Use
  Company Number: CA-ABBOTT-13P-028-1130093-00

PATIENT
  Age: 66 Year
  Sex: Female
  Weight: 59.02 kg

DRUGS (4)
  1. HUMIRA [Suspect]
     Indication: PYODERMA
     Route: 058
     Dates: start: 20130605
  2. HUMIRA [Suspect]
     Dosage: 6TH DOSE EXPECTED FOR 13 AUG 2013
     Route: 058
  3. DILANTIN [Suspect]
     Indication: EPILEPSY
     Route: 048
  4. THALIDOMIDE [Concomitant]
     Indication: PYODERMA
     Dosage: 200 MG DAILY
     Route: 048
     Dates: start: 20130626, end: 20130722

REACTIONS (5)
  - Drug level increased [Recovered/Resolved]
  - Poisoning [Recovered/Resolved]
  - Balance disorder [Recovering/Resolving]
  - Hypersomnia [Recovering/Resolving]
  - Sleep disorder [Recovering/Resolving]
